FAERS Safety Report 20320652 (Version 5)
Quarter: 2022Q3

REPORT INFORMATION
  Report Type: Spontaneous
  Country: JP (occurrence: JP)
  Receive Date: 20220111
  Receipt Date: 20220801
  Transmission Date: 20221027
  Serious: Yes (Hospitalization, Other)
  Sender: FDA-Public Use
  Company Number: JP-GLAXOSMITHKLINE-JP2022JPN002917

PATIENT

DRUGS (5)
  1. NUCALA [Suspect]
     Active Substance: MEPOLIZUMAB
     Indication: Eosinophilic granulomatosis with polyangiitis
     Dosage: 300 MG EVERY 4 WEEKS
     Dates: start: 20200305, end: 20211208
  2. NUCALA [Suspect]
     Active Substance: MEPOLIZUMAB
     Dosage: 300 MG EVERY 4 WEEKS
     Dates: start: 20220112
  3. SULFAMETHOXAZOLE\TRIMETHOPRIM [Suspect]
     Active Substance: SULFAMETHOXAZOLE\TRIMETHOPRIM
     Indication: Infection prophylaxis
     Dosage: 0.5 DF, 1D
     Dates: end: 20220106
  4. INDAPAMIDE [Suspect]
     Active Substance: INDAPAMIDE
     Indication: Cardiac failure
     Dosage: 0.5 MG, 1D
     Dates: end: 20220106
  5. ENTRESTO [Suspect]
     Active Substance: SACUBITRIL\VALSARTAN
     Indication: Cardiac failure
     Dosage: 400 MG, 1D
     Dates: end: 20220106

REACTIONS (5)
  - Pruritus [Recovered/Resolved]
  - Mycobacterium avium complex infection [Recovered/Resolved]
  - Pulmonary mass [Recovered/Resolved]
  - Cardiac failure [Recovered/Resolved]
  - Erythema [Recovered/Resolved]

NARRATIVE: CASE EVENT DATE: 20211101
